FAERS Safety Report 8517855-1 (Version None)
Quarter: 2012Q3

REPORT INFORMATION
  Report Type: 
  Country: None (occurrence: None)
  Receive Date: 20120718
  Receipt Date: 20110621
  Transmission Date: 20120928
  Serious: No
  Sender: FDA-Public Use
  Company Number: US-BRISTOL-MYERS SQUIBB COMPANY-15846637

PATIENT
  Age: 60 Year
  Sex: Female
  Weight: 113 kg

DRUGS (9)
  1. HYDROCHLOROTHIAZIDE [Concomitant]
  2. SINGULAIR [Concomitant]
  3. XANAX [Concomitant]
  4. ADVAIR DISKUS 100/50 [Concomitant]
  5. ALBUTEROL [Concomitant]
  6. COUMADIN [Suspect]
     Indication: PULMONARY EMBOLISM
  7. COUMADIN [Suspect]
     Indication: PROTEIN S DEFICIENCY
  8. BENICAR [Concomitant]
     Indication: BLOOD PRESSURE
  9. COUMADIN [Suspect]
     Indication: THROMBOSIS

REACTIONS (2)
  - INTERNATIONAL NORMALISED RATIO INCREASED [None]
  - WEIGHT DECREASED [None]
